FAERS Safety Report 7641194-4 (Version None)
Quarter: 2011Q3

REPORT INFORMATION
  Report Type: 
  Country: None (occurrence: None)
  Receive Date: 20110728
  Receipt Date: 20110718
  Transmission Date: 20111222
  Serious: Yes (Other)
  Sender: FDA-Public Use
  Company Number: PHFR2011GB03696

PATIENT
  Sex: Male

DRUGS (3)
  1. CLOZAPINE [Suspect]
     Indication: SCHIZOPHRENIA
     Dosage: 500 MG, UNK
     Route: 048
     Dates: start: 19980304
  2. LITHIUM CARBONATE [Concomitant]
     Dosage: 400 MG, UNK
     Route: 065
  3. LITHIUM CARBONATE [Concomitant]
     Dosage: 200 MG, UNK
     Route: 065

REACTIONS (2)
  - BLOOD CREATININE INCREASED [None]
  - BLOOD UREA INCREASED [None]
